FAERS Safety Report 9249066 (Version 1)
Quarter: 2013Q2

REPORT INFORMATION
  Report Type: Spontaneous
  Country: US (occurrence: US)
  Receive Date: 20130423
  Receipt Date: 20130423
  Transmission Date: 20140414
  Serious: Yes (Other)
  Sender: FDA-Public Use
  Company Number: US-ASTRAZENECA-2013SE25024

PATIENT
  Age: 59 Year
  Sex: Female

DRUGS (8)
  1. NEXIUM [Suspect]
     Indication: GASTROOESOPHAGEAL REFLUX DISEASE
     Route: 048
     Dates: start: 2003
  2. METOPROLOL SUCCINATE [Suspect]
     Indication: CORONARY ARTERY DISEASE
     Route: 048
  3. ESTRACE [Concomitant]
     Indication: HYSTERECTOMY
     Route: 048
  4. ALPRAZOLAM [Concomitant]
     Indication: TREMOR
     Route: 048
     Dates: start: 2011
  5. AMERGE [Concomitant]
     Indication: HEADACHE
     Route: 048
  6. CYMBALTA [Concomitant]
     Indication: HEADACHE
     Route: 048
  7. PROTONIX [Concomitant]
     Route: 048
  8. MAGNESIUM OXIDE [Concomitant]
     Indication: BLOOD MAGNESIUM DECREASED
     Route: 048

REACTIONS (8)
  - Pancreatitis [Unknown]
  - Pancreatolithiasis [Unknown]
  - Blood magnesium decreased [Unknown]
  - Tremor [Unknown]
  - Vitamin B12 decreased [Unknown]
  - Vitamin D decreased [Unknown]
  - Off label use [Unknown]
  - Off label use [Unknown]
